FAERS Safety Report 7481856-5 (Version None)
Quarter: 2011Q2

REPORT INFORMATION
  Report Type: 
  Country: None (occurrence: None)
  Receive Date: 20110516
  Receipt Date: 20110506
  Transmission Date: 20111010
  Serious: Yes (Hospitalization)
  Sender: FDA-Public Use
  Company Number: US-JNJFOC-20110503451

PATIENT
  Age: 56 Year
  Sex: Female
  Weight: 59 kg

DRUGS (5)
  1. CITALOPRAM HYDROBROMIDE [Concomitant]
  2. QUETIAPINE [Concomitant]
  3. VICODIN [Suspect]
     Indication: TOOTHACHE
     Route: 048
  4. TRAZODONE HCL [Concomitant]
  5. PARACETAMOL/DIPHENHYDRAMINE [Suspect]
     Indication: PRODUCT USED FOR UNKNOWN INDICATION

REACTIONS (4)
  - HEPATIC FUNCTION ABNORMAL [None]
  - ABDOMINAL PAIN [None]
  - OVERDOSE [None]
  - VOMITING [None]
